FAERS Safety Report 23730567 (Version 1)
Quarter: 2024Q2

REPORT INFORMATION
  Report Type: Other
  Country: US (occurrence: US)
  Receive Date: 20240411
  Receipt Date: 20240411
  Transmission Date: 20240716
  Serious: Yes (Death)
  Sender: FDA-Public Use
  Company Number: US-ALVOGEN-2024093742

PATIENT
  Age: 80 Year
  Sex: Female

DRUGS (10)
  1. LORAZEPAM [Suspect]
     Active Substance: LORAZEPAM
     Indication: Suicide attempt
     Route: 048
  2. ATENOLOL [Suspect]
     Active Substance: ATENOLOL
     Indication: Suicide attempt
     Route: 048
  3. LOSARTAN [Suspect]
     Active Substance: LOSARTAN
     Indication: Suicide attempt
     Route: 048
  4. DULOXETINE [Suspect]
     Active Substance: DULOXETINE
     Indication: Suicide attempt
     Dosage: (ER)
     Route: 048
  5. CLONAZEPAM [Suspect]
     Active Substance: CLONAZEPAM
     Indication: Suicide attempt
     Route: 048
  6. APIXABAN [Suspect]
     Active Substance: APIXABAN
     Indication: Suicide attempt
     Route: 048
  7. ATORVASTATIN [Suspect]
     Active Substance: ATORVASTATIN
     Indication: Suicide attempt
     Route: 048
  8. BUSPIRONE [Suspect]
     Active Substance: BUSPIRONE HYDROCHLORIDE
     Indication: Suicide attempt
     Route: 048
  9. MIRTAZAPINE [Suspect]
     Active Substance: MIRTAZAPINE
     Indication: Suicide attempt
     Route: 048
  10. ACETAMINOPHEN\PROPOXYPHENE [Suspect]
     Active Substance: ACETAMINOPHEN\PROPOXYPHENE
     Indication: Suicide attempt
     Route: 048

REACTIONS (1)
  - Completed suicide [Fatal]
